FAERS Safety Report 24143188 (Version 1)
Quarter: 2024Q3

REPORT INFORMATION
  Report Type: Spontaneous
  Country: FR (occurrence: FR)
  Receive Date: 20240726
  Receipt Date: 20240726
  Transmission Date: 20241017
  Serious: Yes (Disabling)
  Sender: MYLAN
  Company Number: None

PATIENT
  Age: 67 Year
  Sex: Female
  Weight: 60 kg

DRUGS (9)
  1. QUETIAPINE [Suspect]
     Active Substance: QUETIAPINE
     Indication: Psychotic disorder
     Dosage: 800 MILLIGRAM, QD
     Route: 048
     Dates: end: 20181004
  2. MIRTAZAPINE [Suspect]
     Active Substance: MIRTAZAPINE
     Indication: Psychotic disorder
     Dosage: 45 MILLIGRAM, QD
     Route: 048
     Dates: end: 20181004
  3. ALPRAZOLAM [Suspect]
     Active Substance: ALPRAZOLAM
     Indication: Psychotic disorder
     Dosage: 0.5 MILLIGRAM, QD
     Route: 048
     Dates: end: 20181004
  4. CYAMEMAZINE [Suspect]
     Active Substance: CYAMEMAZINE
     Indication: Psychotic disorder
     Dosage: 200 MILLIGRAM, QD
     Route: 048
     Dates: end: 20181004
  5. HALOPERIDOL [Suspect]
     Active Substance: HALOPERIDOL
     Indication: Psychotic disorder
     Dosage: 10 MILLIGRAM, QD
     Route: 048
     Dates: end: 20181004
  6. ACTONEL [Suspect]
     Active Substance: RISEDRONATE SODIUM
     Indication: Osteoporosis
     Dosage: 150 MILLIGRAM, MONTHLY
     Route: 048
     Dates: start: 20181001, end: 20181002
  7. TRIHEXYPHENIDYL HYDROCHLORIDE [Suspect]
     Active Substance: TRIHEXYPHENIDYL HYDROCHLORIDE
     Indication: Parkinsonism
     Dosage: 5 MILLIGRAM, QD
     Route: 048
     Dates: end: 20181004
  8. CALCIUM CARBONATE\CHOLECALCIFEROL [Concomitant]
     Active Substance: CALCIUM CARBONATE\CHOLECALCIFEROL
     Dosage: UNK
     Route: 065
  9. DEXAMETHASONE\OXYTETRACYCLINE [Concomitant]
     Active Substance: DEXAMETHASONE\OXYTETRACYCLINE
     Dosage: UNK
     Route: 065

REACTIONS (1)
  - Necrotising colitis [Recovered/Resolved with Sequelae]

NARRATIVE: CASE EVENT DATE: 20181004
